FAERS Safety Report 9472076 (Version 1)
Quarter: 2013Q3

REPORT INFORMATION
  Report Type: Spontaneous
  Country: US (occurrence: US)
  Receive Date: 20130823
  Receipt Date: 20130823
  Transmission Date: 20140515
  Serious: No
  Sender: FDA-Public Use
  Company Number: US-BIOGENIDEC-2013BI078268

PATIENT
  Sex: Female

DRUGS (1)
  1. AVONEX [Suspect]
     Indication: MULTIPLE SCLEROSIS
     Route: 030
     Dates: start: 20130410

REACTIONS (15)
  - Hypoaesthesia [Not Recovered/Not Resolved]
  - Back pain [Unknown]
  - Electric shock [Unknown]
  - Balance disorder [Unknown]
  - Ear pain [Unknown]
  - Oropharyngeal pain [Unknown]
  - Blood potassium decreased [Unknown]
  - Blood test abnormal [Unknown]
  - General symptom [Unknown]
  - Dry mouth [Unknown]
  - Blood glucose increased [Unknown]
  - Pain [Unknown]
  - Depression [Not Recovered/Not Resolved]
  - Asthenia [Unknown]
  - Muscle spasms [Unknown]
